FAERS Safety Report 21443415 (Version 1)
Quarter: 2022Q4

REPORT INFORMATION
  Report Type: Spontaneous
  Country: ES (occurrence: ES)
  Receive Date: 20221012
  Receipt Date: 20221012
  Transmission Date: 20230113
  Serious: Yes (Other)
  Sender: FDA-Public Use
  Company Number: None

PATIENT
  Age: 64 Year
  Sex: Male

DRUGS (4)
  1. STELARA [Suspect]
     Active Substance: USTEKINUMAB
     Indication: Psoriasis
     Dosage: 45.0 MG C/3 MESES
     Route: 058
     Dates: start: 20190204
  2. STELARA [Suspect]
     Active Substance: USTEKINUMAB
  3. PARACETAMOL KERN PHARMA [Concomitant]
     Indication: Neck pain
     Dosage: 1.0 G DECOCE
     Route: 048
     Dates: start: 20220824
  4. GELOTRADOL [Concomitant]
     Indication: Neck pain
     Dosage: 150.0 MG C/12 H
     Route: 048
     Dates: start: 20220824

REACTIONS (1)
  - Plasma cell myeloma [Not Recovered/Not Resolved]

NARRATIVE: CASE EVENT DATE: 20220909
